FAERS Safety Report 8484218-7 (Version None)
Quarter: 2012Q3

REPORT INFORMATION
  Report Type: 
  Country: None (occurrence: None)
  Receive Date: 20120703
  Receipt Date: 20120628
  Transmission Date: 20120928
  Serious: Yes (Death, Hospitalization)
  Sender: FDA-Public Use
  Company Number: GB-JNJFOC-20111109879

PATIENT
  Sex: Male
  Weight: 128 kg

DRUGS (10)
  1. LOSARTAN POTASSIUM [Concomitant]
     Indication: HYPERTENSION
     Route: 065
  2. METFORMIN HCL [Concomitant]
     Indication: PRODUCT USED FOR UNKNOWN INDICATION
     Route: 065
  3. ASPIRIN [Concomitant]
     Indication: ANGINA PECTORIS
     Route: 065
  4. GLICLAZIDE [Concomitant]
     Indication: DIABETES MELLITUS
     Route: 065
  5. STELARA [Suspect]
     Indication: PSORIASIS
     Route: 058
  6. AMLODIPINE [Concomitant]
     Indication: HYPERTENSION
     Route: 065
  7. SIMVASTATIN [Concomitant]
     Indication: BLOOD CHOLESTEROL INCREASED
     Route: 065
  8. PIOGLITAZONE [Concomitant]
     Indication: PRODUCT USED FOR UNKNOWN INDICATION
     Route: 065
  9. STELARA [Suspect]
     Route: 058
     Dates: start: 20110905
  10. OMEPRAZOLE [Concomitant]
     Indication: PRODUCT USED FOR UNKNOWN INDICATION
     Route: 065

REACTIONS (8)
  - DIABETES MELLITUS [None]
  - HEPATIC CIRRHOSIS [None]
  - COLITIS ISCHAEMIC [None]
  - CHRONIC OBSTRUCTIVE PULMONARY DISEASE [None]
  - PULMONARY EMBOLISM [None]
  - DEEP VEIN THROMBOSIS [None]
  - HYPERTENSIVE HEART DISEASE [None]
  - PERITONITIS [None]
